FAERS Safety Report 9344815 (Version 1)
Quarter: 2013Q2

REPORT INFORMATION
  Report Type: Spontaneous
  Country: US (occurrence: US)
  Receive Date: 20130612
  Receipt Date: 20130612
  Transmission Date: 20140414
  Serious: Yes (Hospitalization)
  Sender: FDA-Public Use
  Company Number: US-GLAXOSMITHKLINE-A1026166A

PATIENT
  Age: 16 Year
  Sex: Female

DRUGS (3)
  1. LAMOTRIGINE [Suspect]
     Indication: PRODUCT USED FOR UNKNOWN INDICATION
     Dosage: 100MG PER DAY
     Route: 048
     Dates: start: 201303, end: 20130525
  2. PROZAC [Concomitant]
  3. CONCERTA [Concomitant]

REACTIONS (3)
  - Bipolar disorder [Unknown]
  - Depression [Unknown]
  - Hallucination [Not Recovered/Not Resolved]
